FAERS Safety Report 8792770 (Version 3)
Quarter: 2013Q3

REPORT INFORMATION
  Report Type: Report from Study
  Country: JP (occurrence: JP)
  Receive Date: 20120918
  Receipt Date: 20130823
  Transmission Date: 20140515
  Serious: No
  Sender: FDA-Public Use
  Company Number: JP-VERTEX PHARMACEUTICAL INC.-AE-2012-010986

PATIENT
  Age: 50 Year
  Sex: Female

DRUGS (8)
  1. VX-950 (TELAPREVIR) [Suspect]
     Indication: CHRONIC HEPATITIS C
     Dosage: 1500 MG, QD
     Route: 048
     Dates: start: 20120524, end: 20120816
  2. REBETOL [Suspect]
     Indication: CHRONIC HEPATITIS C
     Dosage: 600 MG, QD
     Route: 048
     Dates: start: 20120524, end: 20120614
  3. REBETOL [Suspect]
     Dosage: 400 MG, QD
     Route: 048
     Dates: start: 20120615, end: 20121014
  4. REBETOL [Suspect]
     Dosage: 600 MG, QD
     Route: 048
     Dates: start: 20121015, end: 20121108
  5. PEGINTRON [Suspect]
     Indication: HEPATITIS C
     Dosage: 1.39 ?G/KG, QW
     Route: 058
     Dates: start: 20120524
  6. HICEE [Concomitant]
     Dosage: 2 G, QD
     Route: 048
     Dates: end: 20120523
  7. JUVELA [Concomitant]
     Dosage: 150 MG, QD
     Route: 048
     Dates: end: 20120523
  8. URSO [Concomitant]
     Dosage: 600 MG, QD
     Route: 048
     Dates: end: 20120523

REACTIONS (2)
  - White blood cell count decreased [Recovered/Resolved]
  - White blood cell count decreased [Recovered/Resolved]
